FAERS Safety Report 4407894-4 (Version None)
Quarter: 2004Q3

REPORT INFORMATION
  Report Type: 
  Country: None (occurrence: None)
  Receive Date: 20040726
  Receipt Date: 20040414
  Transmission Date: 20050211
  Serious: Yes (Hospitalization)
  Sender: FDA-Public Use
  Company Number: PHNU2004DE01508

PATIENT
  Age: 84 Year
  Sex: Female

DRUGS (5)
  1. TEGRETOL [Suspect]
     Dosage: 100MG/DAY
     Route: 048
     Dates: end: 20040411
  2. ENALAPRIL MALEATE [Concomitant]
  3. ASPIRIN [Concomitant]
  4. IBUPROFEN [Concomitant]
  5. TRAMADOL HCL [Concomitant]

REACTIONS (5)
  - BLOOD CREATINE PHOSPHOKINASE INCREASED [None]
  - DELIRIUM [None]
  - DEPRESSED LEVEL OF CONSCIOUSNESS [None]
  - HYPOKALAEMIA [None]
  - HYPONATRAEMIA [None]
